FAERS Safety Report 6992901-5 (Version None)
Quarter: 2010Q3

REPORT INFORMATION
  Report Type: 
  Country: None (occurrence: None)
  Receive Date: 20100917
  Receipt Date: 20100909
  Transmission Date: 20110219
  Serious: Yes (Other)
  Sender: FDA-Public Use
  Company Number: GXKR2010FI10347

PATIENT
  Sex: Female

DRUGS (8)
  1. ATENOLOL SANDOZ (NGX) [Suspect]
     Dosage: 50 MG/DAY
     Route: 048
     Dates: start: 20100818, end: 20100901
  2. CARDACE [Concomitant]
     Dosage: 10 MG/DAY
     Dates: start: 20090801
  3. CLOPIDOGREL [Concomitant]
     Dosage: 75 MG/DAY
     Dates: start: 20090401
  4. NORFLEX [Concomitant]
     Dosage: 150 MG/DAY
     Dates: start: 20090401
  5. CITALOPRAM HYDROBROMIDE [Concomitant]
     Dosage: 20 MG/DAY
     Dates: start: 20090701
  6. RANIXAL [Concomitant]
     Dosage: 150 MG/DAY
     Dates: start: 20090401
  7. AMITRID [Concomitant]
     Dosage: UNK
     Dates: start: 19900101
  8. POTASSIUM CHLORIDE [Concomitant]
     Dosage: 1500 MG/DAY
     Dates: start: 20090401

REACTIONS (5)
  - DISCOMFORT [None]
  - DIZZINESS [None]
  - PRURITUS [None]
  - SLEEP DISORDER [None]
  - VISUAL IMPAIRMENT [None]
